FAERS Safety Report 8187981-8 (Version None)
Quarter: 2012Q1

REPORT INFORMATION
  Report Type: 
  Country: None (occurrence: None)
  Receive Date: 20120221
  Receipt Date: 20110908
  Transmission Date: 20120608
  Serious: Yes (Other)
  Sender: FDA-Public Use
  Company Number: PHEH2011US03915

PATIENT
  Age: 48 Year
  Sex: Female

DRUGS (1)
  1. TOBI [Suspect]
     Indication: CYSTIC FIBROSIS
     Dosage: 300 MG, EVERY 12 HOURS, INHALATION
     Route: 055
     Dates: start: 20100205, end: 20110908

REACTIONS (1)
  - HEARING DISABILITY [None]
